FAERS Safety Report 4781059-9 (Version None)
Quarter: 2005Q3

REPORT INFORMATION
  Report Type: 
  Country: None (occurrence: None)
  Receive Date: 20050926
  Receipt Date: 20050914
  Transmission Date: 20060218
  Serious: Yes (Hospitalization)
  Sender: FDA-Public Use
  Company Number: 2005046458

PATIENT
  Age: 69 Year
  Sex: Female

DRUGS (5)
  1. CABERGOLINE [Suspect]
     Indication: PARKINSON'S DISEASE
     Dosage: SEE IMAGE
     Route: 048
  2. LEBOCAR (CARBIDOPA, LEVODOPA) [Suspect]
     Indication: PARKINSON'S DISEASE
     Dosage: SEE IMAGE
     Route: 048
  3. BENSERAZIDE HYDROCHLORIDE           (BENSERAZIDE HYDROCHLORIDE) [Suspect]
     Indication: PARKINSON'S DISEASE
     Dosage: SEE IMAGE
     Route: 048
  4. BROMOCRIPTINE MESYLATE [Suspect]
     Indication: PARKINSON'S DISEASE
  5. QUETIAPINE FUMARATE [Concomitant]
     Indication: PARKINSON'S DISEASE
     Dosage: 50 MG

REACTIONS (6)
  - ACTIVITIES OF DAILY LIVING IMPAIRED [None]
  - HALLUCINATION, VISUAL [None]
  - MUSCLE RIGIDITY [None]
  - PERSECUTORY DELUSION [None]
  - SOLILOQUY [None]
  - SOMATIC HALLUCINATION [None]
